FAERS Safety Report 16686947 (Version 1)
Quarter: 2019Q3

REPORT INFORMATION
  Report Type: Spontaneous
  Country: US (occurrence: US)
  Receive Date: 20190809
  Receipt Date: 20190809
  Transmission Date: 20191004
  Serious: Yes (Other)
  Sender: FDA-Public Use
  Company Number: US-COOPERSURGICAL, INC.-US-2019CPS002398

PATIENT
  Sex: Female

DRUGS (1)
  1. PARAGARD T 380A [Suspect]
     Active Substance: COPPER
     Indication: PRODUCT USED FOR UNKNOWN INDICATION
     Dosage: UNK
     Route: 015
     Dates: start: 200712

REACTIONS (6)
  - Discomfort [Unknown]
  - Anxiety [Unknown]
  - Economic problem [Unknown]
  - Foreign body in reproductive tract [Unknown]
  - Device breakage [Unknown]
  - Complication of device removal [Unknown]

NARRATIVE: CASE EVENT DATE: 20160628
